FAERS Safety Report 10979445 (Version 1)
Quarter: 2015Q2

REPORT INFORMATION
  Report Type: Spontaneous
  Country: GB (occurrence: GB)
  Receive Date: 20150402
  Receipt Date: 20150402
  Transmission Date: 20150821
  Serious: Yes (Other)
  Sender: FDA-Public Use
  Company Number: GB-PFIZER INC-2015105385

PATIENT
  Age: 68 Year
  Sex: Male
  Weight: 95 kg

DRUGS (7)
  1. SILDENAFIL. [Concomitant]
     Active Substance: SILDENAFIL
     Dosage: UNK, AS NEEDED
     Dates: start: 20141118
  2. BENDROFLUMETHIAZIDE [Concomitant]
     Active Substance: BENDROFLUMETHIAZIDE
     Dosage: 1 DF, EACH MORNING
     Dates: start: 20141118
  3. BISOPROLOL [Concomitant]
     Active Substance: BISOPROLOL
     Dosage: 1 DF, 1X/DAY
     Dates: start: 20141118
  4. CLOPIDOGREL [Concomitant]
     Active Substance: CLOPIDOGREL BISULFATE
     Dosage: 1 DF, 1X/DAY
     Dates: start: 20141118
  5. ATORVASTATIN CALCIUM. [Suspect]
     Active Substance: ATORVASTATIN CALCIUM
     Dosage: 1 DF, EACH NIGHT
     Dates: start: 20141118
  6. LOSARTAN [Concomitant]
     Active Substance: LOSARTAN
     Dosage: 1 DF, 1X/DAY
     Dates: start: 20141118
  7. WARFARIN SODIUM. [Concomitant]
     Active Substance: WARFARIN SODIUM
     Dosage: 1 DF, 1X/DAY PER INSTRUCTIONS
     Dates: start: 20141118

REACTIONS (1)
  - Haematuria [Recovered/Resolved]
